FAERS Safety Report 4869096-7 (Version None)
Quarter: 2005Q4

REPORT INFORMATION
  Report Type: 
  Country: None (occurrence: None)
  Receive Date: 20051227
  Receipt Date: 20051221
  Transmission Date: 20060501
  Serious: Yes (Hospitalization)
  Sender: FDA-Public Use
  Company Number: 2005-12-1071

PATIENT
  Age: 44 Year
  Sex: Male
  Weight: 56 kg

DRUGS (6)
  1. VIRAFERONPEG [Suspect]
     Indication: HEPATITIS C
     Dates: end: 20010409
  2. DAPSONE [Suspect]
     Dosage: ORAL
     Route: 048
     Dates: end: 20010420
  3. SUSTIVA [Suspect]
     Dosage: ORAL
     Route: 048
     Dates: end: 20010409
  4. COMBIVIR [Suspect]
     Dosage: ORAL
     Route: 048
     Dates: end: 20010409
  5. ZEFFIX (LAMIVUDINE) [Suspect]
     Dosage: ORAL
     Route: 048
     Dates: end: 20010417
  6. ALDACTONE [Concomitant]

REACTIONS (6)
  - CONDITION AGGRAVATED [None]
  - CYTOLYTIC HEPATITIS [None]
  - HEPATIC CIRRHOSIS [None]
  - LOBAR PNEUMONIA [None]
  - PANCREATITIS [None]
  - RENAL FAILURE [None]
